FAERS Safety Report 4708188-X (Version None)
Quarter: 2005Q2

REPORT INFORMATION
  Report Type: 
  Country: None (occurrence: None)
  Receive Date: 20050629
  Receipt Date: 20050513
  Transmission Date: 20051028
  Serious: No
  Sender: FDA-Public Use
  Company Number: 05P-163-0300564-00

PATIENT
  Age: 53 Year
  Sex: Female
  Weight: 109.1 kg

DRUGS (3)
  1. HUMIRA [Suspect]
     Indication: RHEUMATOID ARTHRITIS
     Dosage: 40 MG 1 IN 1 WK, SUBCUTANEOUS
     Route: 058
     Dates: start: 20050420, end: 20050504
  2. PARACETAMOL [Concomitant]
  3. RANITIDINE HYDROCHLORIDE [Concomitant]

REACTIONS (7)
  - DYSPNOEA [None]
  - INJECTION SITE ERYTHEMA [None]
  - INJECTION SITE NODULE [None]
  - INJECTION SITE SWELLING [None]
  - RASH [None]
  - SWELLING FACE [None]
  - URTICARIA GENERALISED [None]
